FAERS Safety Report 11132359 (Version 3)
Quarter: 2015Q2

REPORT INFORMATION
  Report Type: Report from Study
  Country: US (occurrence: US)
  Receive Date: 20150522
  Receipt Date: 20150601
  Transmission Date: 20150821
  Serious: Yes (Death, Hospitalization)
  Sender: FDA-Public Use
  Company Number: US-BRISTOL-MYERS SQUIBB COMPANY-BMS-2015-033892

PATIENT
  Age: 75 Year
  Sex: Male

DRUGS (17)
  1. NIVOLUMAB [Suspect]
     Active Substance: NIVOLUMAB
     Indication: METASTATIC MALIGNANT MELANOMA
     Dosage: 1 MG/KG, UNK
     Route: 042
     Dates: start: 20150227
  2. PREDNISONE. [Concomitant]
     Active Substance: PREDNISONE
     Indication: ACUTE KIDNEY INJURY
     Dosage: 60 MG, UNK
     Route: 048
     Dates: start: 20150416
  3. OMEPRAZOLE. [Concomitant]
     Active Substance: OMEPRAZOLE
     Indication: PRODUCT USED FOR UNKNOWN INDICATION
     Dosage: 50 MG, UNK
     Route: 048
     Dates: start: 20150416
  4. IPILIMUMAB [Suspect]
     Active Substance: IPILIMUMAB
     Indication: METASTATIC MALIGNANT MELANOMA
     Dosage: 3 MG/KG, UNK
     Route: 042
     Dates: start: 20150227
  5. SOLU-MEDROL [Concomitant]
     Active Substance: METHYLPREDNISOLONE SODIUM SUCCINATE
     Indication: ACUTE KIDNEY INJURY
     Dosage: 500 MG, QD
     Route: 042
     Dates: start: 20150413, end: 20150415
  6. SENNOSIDES A+B [Concomitant]
     Active Substance: SENNOSIDES A AND B
     Indication: CONSTIPATION
     Dosage: 17.2 MG, UNK
     Route: 048
     Dates: start: 20150416
  7. COLACE [Concomitant]
     Active Substance: DOCUSATE SODIUM
     Indication: CONSTIPATION
     Dosage: 200 MG, UNK
     Route: 048
     Dates: start: 20150415
  8. FUROSEMIDE. [Concomitant]
     Active Substance: FUROSEMIDE
     Indication: OEDEMA PERIPHERAL
     Dosage: 20 MG, UNK
     Route: 048
     Dates: start: 20150416
  9. SODIUM BICARBONATE. [Concomitant]
     Active Substance: SODIUM BICARBONATE
     Indication: ACUTE KIDNEY INJURY
     Dosage: 1300 MG, UNK
     Route: 048
     Dates: start: 20150416
  10. TYLENOL [Concomitant]
     Active Substance: ACETAMINOPHEN
     Indication: HEADACHE
     Dosage: 650 MG, UNK
     Route: 048
     Dates: start: 20150416
  11. CLOBETASOL [Concomitant]
     Active Substance: CLOBETASOL
     Indication: RASH MACULO-PAPULAR
     Dosage: UNK
     Route: 061
     Dates: start: 20150319
  12. MULTIVITAMINS [Concomitant]
     Active Substance: VITAMINS
     Indication: PRODUCT USED FOR UNKNOWN INDICATION
     Dosage: 1 DF, 1 TAB DOSING UNIT ORAL
     Route: 048
     Dates: start: 20150416
  13. ATOVAQUONE. [Concomitant]
     Active Substance: ATOVAQUONE
     Indication: PRODUCT USED FOR UNKNOWN INDICATION
     Dosage: 1500 MG, QD
     Route: 048
     Dates: start: 20150416
  14. NORMAL SALINE [Concomitant]
     Active Substance: SODIUM CHLORIDE
     Indication: DEHYDRATION
     Dosage: 2000 ML, QD
     Route: 042
     Dates: start: 20150410
  15. AMLODIPINE [Concomitant]
     Active Substance: AMLODIPINE BESYLATE
     Indication: ACUTE KIDNEY INJURY
     Dosage: 5 MG, UNK
     Route: 048
     Dates: start: 20150416
  16. LABETALOL [Concomitant]
     Active Substance: LABETALOL\LABETALOL HYDROCHLORIDE
     Indication: ACUTE KIDNEY INJURY
     Dosage: 1200 MG, UNK
     Route: 048
     Dates: start: 20150416
  17. MIRALAX [Concomitant]
     Active Substance: POLYETHYLENE GLYCOL 3350
     Indication: CONSTIPATION
     Dosage: 34 G, UNK
     Route: 048
     Dates: start: 20150416

REACTIONS (1)
  - Death [Fatal]

NARRATIVE: CASE EVENT DATE: 20150519
